FAERS Safety Report 16625256 (Version 3)
Quarter: 2019Q3

REPORT INFORMATION
  Report Type: Spontaneous
  Country: US (occurrence: US)
  Receive Date: 20190724
  Receipt Date: 20190802
  Transmission Date: 20191004
  Serious: No
  Sender: FDA-Public Use
  Company Number: US-PFIZER INC-2019029899

PATIENT
  Age: 62 Year
  Sex: Female

DRUGS (1)
  1. CELECOXIB. [Suspect]
     Active Substance: CELECOXIB
     Indication: OSTEOARTHRITIS
     Dosage: 200 MG, 2X/ DAY (EVERY TWELVE HOURS, AS NEEDED)
     Route: 048
     Dates: start: 20181228, end: 20190507

REACTIONS (2)
  - Off label use [Unknown]
  - Gastritis [Unknown]

NARRATIVE: CASE EVENT DATE: 20181228
